FAERS Safety Report 21931865 (Version 1)
Quarter: 2023Q1

REPORT INFORMATION
  Report Type: Spontaneous
  Country: HU (occurrence: HU)
  Receive Date: 20230131
  Receipt Date: 20230131
  Transmission Date: 20230418
  Serious: Yes (Other)
  Sender: FDA-Public Use
  Company Number: HU-ABBVIE-4240894

PATIENT
  Age: 36 Year
  Sex: Female

DRUGS (3)
  1. DASABUVIR [Suspect]
     Active Substance: DASABUVIR
     Indication: Hepatitis C
     Dosage: 500 MILLIGRAM?FREQUENCY TEXT: 2 TABLETS IN THE MORNING
     Route: 048
     Dates: start: 20221015
  2. DASABUVIR [Suspect]
     Active Substance: DASABUVIR
     Indication: Hepatitis C
     Dosage: 12,5 MG OMBITASVIR, 75 MG PARITAPREVIR, 50 MG RITONAVIR / TABLET?FREQUENCY TEXT: 2 TABLETS IN THE...
     Route: 048
     Dates: start: 20221015
  3. OMBITASVIR\PARITAPREVIR\RITONAVIR [Suspect]
     Active Substance: OMBITASVIR\PARITAPREVIR\RITONAVIR
     Indication: Hepatitis C
     Dosage: 12.5 MG OMBITASVIR, 75 MG PARITAPREVIR, 50 MG RITONAVIR / TABLET
     Route: 048
     Dates: start: 20221015

REACTIONS (2)
  - Abortion induced [Recovered/Resolved]
  - Maternal exposure during pregnancy [Unknown]

NARRATIVE: CASE EVENT DATE: 20221001
